FAERS Safety Report 22344989 (Version 1)
Quarter: 2023Q2

REPORT INFORMATION
  Report Type: Spontaneous
  Country: AU (occurrence: AU)
  Receive Date: 20230519
  Receipt Date: 20230519
  Transmission Date: 20230721
  Serious: Yes (Death)
  Sender: FDA-Public Use
  Company Number: AU-TASMAN PHARMA, INC.-2023TSM00099

PATIENT
  Sex: Male

DRUGS (5)
  1. CLOZAPINE [Suspect]
     Active Substance: CLOZAPINE
     Dosage: 350 MG
     Dates: start: 20221216, end: 20230112
  2. CLOZAPINE [Suspect]
     Active Substance: CLOZAPINE
     Dosage: 400 MG
     Dates: start: 20230113, end: 20230212
  3. CLOZAPINE [Suspect]
     Active Substance: CLOZAPINE
     Dosage: 450 MG
     Dates: start: 20230213, end: 20230309
  4. CLOZAPINE [Suspect]
     Active Substance: CLOZAPINE
     Dosage: 450 MG
     Dates: start: 20230310, end: 20230404
  5. CLOZAPINE [Suspect]
     Active Substance: CLOZAPINE
     Dosage: 550 MG
     Dates: start: 20230405, end: 20230427

REACTIONS (1)
  - Death [Fatal]

NARRATIVE: CASE EVENT DATE: 20230428
